FAERS Safety Report 7694479-X (Version None)
Quarter: 2011Q3

REPORT INFORMATION
  Report Type: 
  Country: None (occurrence: None)
  Receive Date: 20110819
  Receipt Date: 20110812
  Transmission Date: 20111222
  Serious: Yes (Hospitalization, Other)
  Sender: FDA-Public Use
  Company Number: PHHY2011BR73117

PATIENT
  Sex: Male

DRUGS (2)
  1. RASILEZ [Suspect]
  2. GALVUS [Suspect]

REACTIONS (1)
  - ROAD TRAFFIC ACCIDENT [None]
